FAERS Safety Report 6861894-3 (Version None)
Quarter: 2010Q3

REPORT INFORMATION
  Report Type: 
  Country: None (occurrence: None)
  Receive Date: 20100721
  Receipt Date: 20100706
  Transmission Date: 20110219
  Serious: Yes (Other)
  Sender: FDA-Public Use
  Company Number: GB-MYLANLABS-2010S1009208

PATIENT
  Age: 21 Year
  Sex: Female

DRUGS (1)
  1. DOXYCYCLINE MONOHYDRATE [Suspect]
     Indication: LYME DISEASE
     Route: 048
     Dates: start: 20100101, end: 20100428

REACTIONS (9)
  - DECREASED APPETITE [None]
  - FOOD AVERSION [None]
  - INTESTINAL FUNCTIONAL DISORDER [None]
  - MOBILITY DECREASED [None]
  - NAIL PIGMENTATION [None]
  - NAUSEA [None]
  - PAIN IN EXTREMITY [None]
  - PHOTOSENSITIVITY REACTION [None]
  - VOMITING [None]
